FAERS Safety Report 19019144 (Version 1)
Quarter: 2021Q1

REPORT INFORMATION
  Report Type: Spontaneous
  Country: DE (occurrence: DE)
  Receive Date: 20210317
  Receipt Date: 20210317
  Transmission Date: 20210420
  Serious: Yes (Other)
  Sender: FDA-Public Use
  Company Number: DE-SA-2021SA079262

PATIENT
  Age: 83 Year

DRUGS (1)
  1. AFLIBERCEPT [Suspect]
     Active Substance: AFLIBERCEPT
     Indication: INTRA-OCULAR INJECTION
     Dosage: UNK
     Route: 031

REACTIONS (2)
  - Endophthalmitis [Unknown]
  - Syringe issue [Unknown]

NARRATIVE: CASE EVENT DATE: 20210215
